FAERS Safety Report 14467984 (Version 5)
Quarter: 2019Q2

REPORT INFORMATION
  Report Type: Spontaneous
  Country: US (occurrence: US)
  Receive Date: 20180131
  Receipt Date: 20190401
  Transmission Date: 20190711
  Serious: No
  Sender: FDA-Public Use
  Company Number: US-PFIZER INC-2018039221

PATIENT
  Age: 62 Year
  Sex: Female
  Weight: 88 kg

DRUGS (5)
  1. GAMMAPLEX [Concomitant]
     Active Substance: HUMAN IMMUNOGLOBULIN G
     Dosage: 250 MG, WEEKLY
     Route: 042
  2. LYRICA [Suspect]
     Active Substance: PREGABALIN
     Indication: PAIN
     Dosage: 300 MG, 2X/DAY
     Route: 048
     Dates: start: 20190226
  3. LYRICA [Suspect]
     Active Substance: PREGABALIN
     Indication: POST HERPETIC NEURALGIA
  4. LYRICA [Suspect]
     Active Substance: PREGABALIN
     Indication: HERPES ZOSTER
     Dosage: 300 MG, 2X/DAY
     Route: 048
     Dates: end: 20180125
  5. LYRICA [Suspect]
     Active Substance: PREGABALIN
     Indication: CERVICAL SPINAL STENOSIS

REACTIONS (7)
  - Rash [Unknown]
  - Dermatitis [Unknown]
  - Malaise [Unknown]
  - Skin fissures [Unknown]
  - Pain of skin [Unknown]
  - Intentional product use issue [Unknown]
  - Influenza [Recovering/Resolving]

NARRATIVE: CASE EVENT DATE: 2018
